FAERS Safety Report 16986070 (Version 1)
Quarter: 2019Q4

REPORT INFORMATION
  Report Type: Spontaneous
  Country: US (occurrence: US)
  Receive Date: 20190918
  Receipt Date: 20190918
  Transmission Date: 20200122
  Serious: No
  Sender: FDA-Public Use
  Company Number: None

PATIENT
  Age: 44 Year
  Sex: Male

DRUGS (4)
  1. LEXAPRO [Concomitant]
     Active Substance: ESCITALOPRAM OXALATE
  2. METOPROLOL. [Concomitant]
     Active Substance: METOPROLOL
  3. TESTOSTERONE. [Concomitant]
     Active Substance: TESTOSTERONE
  4. SUTENT [Suspect]
     Active Substance: SUNITINIB MALATE
     Indication: RENAL CANCER
     Route: 048
     Dates: start: 20190808

REACTIONS (1)
  - Product use issue [None]

NARRATIVE: CASE EVENT DATE: 20190918
